FAERS Safety Report 21662764 (Version 1)
Quarter: 2022Q4

REPORT INFORMATION
  Report Type: Spontaneous
  Country: US (occurrence: US)
  Receive Date: 20221130
  Receipt Date: 20221130
  Transmission Date: 20230113
  Serious: No
  Sender: FDA-Public Use
  Company Number: US-PFIZER INC-202201337123

PATIENT
  Age: 77 Year
  Sex: Female
  Weight: 70.31 kg

DRUGS (15)
  1. MEKTOVI [Suspect]
     Active Substance: BINIMETINIB
     Indication: Malignant melanoma
     Dosage: 30 MG, 2X/DAY (15MG TABLET, 2 TABLETS TWICE A DAY)
     Dates: start: 20221006
  2. MEKTOVI [Suspect]
     Active Substance: BINIMETINIB
     Dosage: 15 MG, 2X/DAY (1 TABLET TWICE AND DAY AND TITRATED IT UP)
  3. MEKTOVI [Suspect]
     Active Substance: BINIMETINIB
     Dosage: 30 MG, 2X/DAY (SHE INCREASED IT TO 2 TABLETS TWICE A DAY ON 25OCT2022)
     Dates: start: 20221025
  4. MEKTOVI [Suspect]
     Active Substance: BINIMETINIB
     Dosage: 45 MG, 2X/DAY ( THEN INCREASED IT AGAIN TO 3 TABLETS TWICE A DAY ON 8NOV2022)
     Dates: start: 20221108
  5. BRAFTOVI [Suspect]
     Active Substance: ENCORAFENIB
     Indication: Malignant melanoma
     Dosage: 75 MG
     Dates: start: 20221006
  6. BRAFTOVI [Suspect]
     Active Substance: ENCORAFENIB
     Dosage: 75 MG, 2X/DAY (BUT THE DOCTOR STARTED HER AT A LOWER DOSE OF 1 CAPSULE TWICE AND DAY)
  7. BRAFTOVI [Suspect]
     Active Substance: ENCORAFENIB
     Dosage: 150 MG, 2X/DAY (ON 18OCT2022 IT WAS INCREASED TO 2 CAPSULES IN THE MORNING AND 2 AT NIGHT)
     Dates: start: 20221018
  8. OMEPRAZOLE [Concomitant]
     Active Substance: OMEPRAZOLE
     Indication: Gastrooesophageal reflux disease
     Dosage: 40 MG, 1X/DAY
  9. LEVOTHYROXINE [Concomitant]
     Active Substance: LEVOTHYROXINE
     Indication: Thyroid disorder
     Dosage: 88 UG, 1X/DAY (88MCG TABLET, IN THE MORNING BEFORE EATING)
  10. MAGNESIUM [Concomitant]
     Active Substance: MAGNESIUM
     Indication: Bone disorder
     Dosage: 500 MG, 1X/DAY
  11. VITAMIN B12 [Concomitant]
     Active Substance: CYANOCOBALAMIN
     Indication: Metabolic disorder
     Dosage: 1000 UG, 1X/DAY
  12. VITAMIN B12 [Concomitant]
     Active Substance: CYANOCOBALAMIN
     Indication: Asthenia
  13. VITAMIN D3 [Concomitant]
     Active Substance: CHOLECALCIFEROL
     Indication: Bone disorder
     Dosage: 2000 IU, 1X/DAY
  14. SIMVASTATIN [Concomitant]
     Active Substance: SIMVASTATIN
     Indication: Blood cholesterol abnormal
     Dosage: 40 MG, 1X/DAY (40MG ONCE DAILY AT NIGHT)
  15. FLUOXETINE [Concomitant]
     Active Substance: FLUOXETINE HYDROCHLORIDE
     Indication: Depression
     Dosage: 10 MG, 1X/DAY (10MG CAPSULE ONCE DAILY)

REACTIONS (2)
  - Hyperkeratosis [Not Recovered/Not Resolved]
  - Dyspnoea [Unknown]

NARRATIVE: CASE EVENT DATE: 20220101
